FAERS Safety Report 25218771 (Version 1)
Quarter: 2025Q2

REPORT INFORMATION
  Report Type: Spontaneous
  Country: KR (occurrence: KR)
  Receive Date: 20250421
  Receipt Date: 20250421
  Transmission Date: 20250716
  Serious: Yes (Hospitalization)
  Sender: ROCHE
  Company Number: KR-ROCHE-10000258207

PATIENT
  Age: 64 Year
  Sex: Female
  Weight: 49 kg

DRUGS (2)
  1. PERJETA [Suspect]
     Active Substance: PERTUZUMAB
     Indication: Mixed hepatocellular cholangiocarcinoma
     Route: 042
     Dates: start: 20230502, end: 20230502
  2. TRASTUZUMAB [Suspect]
     Active Substance: TRASTUZUMAB
     Indication: Mixed hepatocellular cholangiocarcinoma
     Route: 058
     Dates: start: 20230502, end: 20230502

REACTIONS (4)
  - Diarrhoea [Recovering/Resolving]
  - Asthenia [Recovering/Resolving]
  - Oedema peripheral [Recovering/Resolving]
  - Acute kidney injury [Recovering/Resolving]

NARRATIVE: CASE EVENT DATE: 20230510
